FAERS Safety Report 6965076-6 (Version None)
Quarter: 2010Q3

REPORT INFORMATION
  Report Type: 
  Country: None (occurrence: None)
  Receive Date: 20100903
  Receipt Date: 20100804
  Transmission Date: 20110219
  Serious: Yes (Disabling, Other)
  Sender: FDA-Public Use
  Company Number: US-WYE-H16778710

PATIENT
  Sex: Female
  Weight: 99.88 kg

DRUGS (6)
  1. PRISTIQ [Suspect]
     Indication: DEPRESSION
     Route: 048
     Dates: start: 20090721, end: 20090804
  2. DYAZIDE [Concomitant]
     Indication: HYPERTENSION
     Dosage: UNKNOWN
     Route: 048
  3. LEXAPRO [Concomitant]
     Indication: DEPRESSION
     Route: 048
  4. ATENOLOL [Concomitant]
     Indication: HYPERTENSION
     Route: 048
  5. SIMVASTATIN [Concomitant]
     Indication: BLOOD CHOLESTEROL INCREASED
     Dosage: 20 MG EVERY 1 TOT
     Route: 048
  6. POTASSIUM [Concomitant]
     Indication: HYPOKALAEMIA
     Route: 048

REACTIONS (2)
  - AGGRESSION [None]
  - AGITATION [None]
